FAERS Safety Report 8394447-9 (Version None)
Quarter: 2012Q2

REPORT INFORMATION
  Report Type: 
  Country: None (occurrence: None)
  Receive Date: 20120525
  Receipt Date: 20120525
  Transmission Date: 20120825
  Serious: No
  Sender: FDA-Public Use
  Company Number: None

PATIENT
  Age: 47 Year
  Sex: Female
  Weight: 79.3795 kg

DRUGS (2)
  1. CUBICIN [Suspect]
     Indication: ABSCESS
     Dosage: 1 DAILY IV BOLUS
     Route: 040
     Dates: start: 20120511, end: 20120521
  2. CUBICIN [Suspect]
     Indication: STAPHYLOCOCCAL INFECTION
     Dosage: 1 DAILY IV BOLUS
     Route: 040
     Dates: start: 20120511, end: 20120521

REACTIONS (8)
  - DYSPNOEA [None]
  - HYPERHIDROSIS [None]
  - ARTHRALGIA [None]
  - NO THERAPEUTIC RESPONSE [None]
  - BODY TEMPERATURE INCREASED [None]
  - PRURITUS [None]
  - SWELLING [None]
  - BLOOD PRESSURE INCREASED [None]
